FAERS Safety Report 7326647-0 (Version None)
Quarter: 2011Q1

REPORT INFORMATION
  Report Type: 
  Country: None (occurrence: None)
  Receive Date: 20110302
  Receipt Date: 20110221
  Transmission Date: 20110831
  Serious: Yes (Hospitalization)
  Sender: FDA-Public Use
  Company Number: FR-ACTELION-A-CH2010-37951

PATIENT
  Sex: Female

DRUGS (12)
  1. LASIX [Concomitant]
  2. TRACLEER [Suspect]
     Indication: PULMONARY ARTERIAL HYPERTENSION
     Dosage: 62.5 MG, BID
     Route: 048
     Dates: start: 20090331, end: 20100303
  3. MINIRIN [Concomitant]
  4. PARIET [Concomitant]
  5. EFFEXOR [Concomitant]
  6. OXYGEN [Concomitant]
  7. REVATIO [Concomitant]
     Dosage: UNK
     Dates: start: 20090301
  8. TARDYFERON [Concomitant]
  9. MAGNE-B6 [Concomitant]
  10. ATARAX [Concomitant]
  11. PREVISCAN [Concomitant]
  12. DIFFU K [Concomitant]

REACTIONS (8)
  - HEPATIC ENZYME INCREASED [None]
  - AUTOIMMUNE HEPATITIS [None]
  - BIOPSY LIVER [None]
  - BLOOD BILIRUBIN INCREASED [None]
  - GAMMA-GLUTAMYLTRANSFERASE INCREASED [None]
  - CYTOLYTIC HEPATITIS [None]
  - CHOLESTASIS [None]
  - TRANSAMINASES INCREASED [None]
